FAERS Safety Report 15819001 (Version 2)
Quarter: 2019Q1

REPORT INFORMATION
  Report Type: Spontaneous
  Country: NL (occurrence: NL)
  Receive Date: 20190114
  Receipt Date: 20190123
  Transmission Date: 20190417
  Serious: Yes (Hospitalization)
  Sender: FDA-Public Use
  Company Number: NL-TEVA-2019-NL-998154

PATIENT
  Age: 13 Year
  Sex: Female
  Weight: 51 kg

DRUGS (2)
  1. RIZATRIPTAN SMELTTABLET, 10 MG (MILLIGRAM) [Suspect]
     Active Substance: RIZATRIPTAN
     Indication: MIGRAINE
     Dosage: IF NECESSARY 1 MELTING TABLET
     Dates: start: 20181209, end: 20181209
  2. MELATONINE 0,1 [Concomitant]
     Dosage: ONE-TIME TWO TABLETS

REACTIONS (6)
  - Tremor [Recovered/Resolved]
  - Confusional state [Recovered/Resolved]
  - Agitation [Recovered/Resolved]
  - Dysarthria [Recovered/Resolved]
  - Respiration abnormal [Recovered/Resolved]
  - Somnolence [Recovered/Resolved]

NARRATIVE: CASE EVENT DATE: 20181209
